FAERS Safety Report 9690804 (Version 1)
Quarter: 2013Q4

REPORT INFORMATION
  Report Type: Report from Study
  Country: FR (occurrence: FR)
  Receive Date: 20131115
  Receipt Date: 20131115
  Transmission Date: 20140711
  Serious: Yes (Other)
  Sender: FDA-Public Use
  Company Number: FR-JNJFOC-20131104978

PATIENT
  Age: 37 Year
  Sex: Female

DRUGS (2)
  1. STELARA [Suspect]
     Indication: PRODUCT USED FOR UNKNOWN INDICATION
     Dosage: IN SEP (YEAR UNSPECIFIED)
     Route: 058
  2. STELARA [Suspect]
     Indication: PRODUCT USED FOR UNKNOWN INDICATION
     Dosage: IN OCT (YEAR UNSPECIFIED)
     Route: 058

REACTIONS (8)
  - Vomiting [Unknown]
  - Hyperhidrosis [Unknown]
  - Constipation [Unknown]
  - Pain [Unknown]
  - Cough [Unknown]
  - Eating disorder [Unknown]
  - Myalgia [Unknown]
  - Fatigue [Unknown]
